FAERS Safety Report 5764505-3 (Version None)
Quarter: 2008Q2

REPORT INFORMATION
  Report Type: 
  Country: None (occurrence: None)
  Receive Date: 20080610
  Receipt Date: 20080529
  Transmission Date: 20081010
  Serious: Yes (Hospitalization)
  Sender: FDA-Public Use
  Company Number: FR-PFIZER INC-2008023646

PATIENT
  Sex: Female
  Weight: 73 kg

DRUGS (7)
  1. FARLUTAL [Suspect]
     Indication: ENDOMETRIAL CANCER
     Dosage: DAILY DOSE:1000MG-FREQ:BID, EVERY DAY
     Route: 048
  2. ZOLOFT [Concomitant]
     Route: 048
  3. PREVISCAN [Concomitant]
  4. LEXOMIL [Concomitant]
     Dosage: FREQ:1/4 TABLET PER DAY
     Route: 048
  5. OXAZEPAM [Concomitant]
     Dosage: DAILY DOSE:50MG-FREQ:DAILY
  6. COKENZEN [Concomitant]
     Route: 048
  7. PANTOPRAZOLE SODIUM [Concomitant]
     Route: 048

REACTIONS (1)
  - BLOOD CORTICOTROPHIN DECREASED [None]
